FAERS Safety Report 10426409 (Version 2)
Quarter: 2014Q3

REPORT INFORMATION
  Report Type: Spontaneous
  Country: US (occurrence: US)
  Receive Date: 20140903
  Receipt Date: 20140915
  Transmission Date: 20150326
  Serious: Yes (Hospitalization)
  Sender: FDA-Public Use
  Company Number: US-JNJFOC-20140823998

PATIENT
  Age: 86 Year
  Sex: Female
  Weight: 48.99 kg

DRUGS (4)
  1. TOPROL XL [Concomitant]
     Active Substance: METOPROLOL SUCCINATE
     Indication: ATRIAL FIBRILLATION
     Route: 065
  2. XARELTO [Suspect]
     Active Substance: RIVAROXABAN
     Indication: ATRIAL FIBRILLATION
     Route: 048
  3. XARELTO [Suspect]
     Active Substance: RIVAROXABAN
     Indication: CEREBROVASCULAR ACCIDENT PROPHYLAXIS
     Route: 048
  4. LASIX [Concomitant]
     Active Substance: FUROSEMIDE
     Dosage: EVERY OTHER DAY
     Route: 065

REACTIONS (9)
  - Dyspnoea [Recovered/Resolved]
  - Vascular injury [Unknown]
  - Asthenia [Recovered/Resolved]
  - Fall [Recovered/Resolved]
  - Haemorrhage [Unknown]
  - Back injury [Recovered/Resolved]
  - Contusion [Recovered/Resolved]
  - Gait disturbance [Recovered/Resolved]
  - Haemothorax [Recovered/Resolved]

NARRATIVE: CASE EVENT DATE: 201403
